FAERS Safety Report 12817879 (Version 2)
Quarter: 2017Q1

REPORT INFORMATION
  Report Type: Spontaneous
  Country: US (occurrence: US)
  Receive Date: 20161006
  Receipt Date: 20170104
  Transmission Date: 20170428
  Serious: No
  Sender: FDA-Public Use
  Company Number: US-LUPIN PHARMACEUTICALS INC.-2016-04386

PATIENT
  Sex: Male
  Weight: 77.11 kg

DRUGS (3)
  1. OXYCODONE [Concomitant]
     Active Substance: OXYCODONE
     Indication: MUSCULOSKELETAL DISCOMFORT
     Route: 065
  2. DULOXETINE DELAYED-RELEASE 30 MG CAPSULES USP [Suspect]
     Active Substance: DULOXETINE
     Indication: FIBROMYALGIA
     Route: 048
  3. HYDROCODONE [Concomitant]
     Active Substance: HYDROCODONE
     Indication: MUSCULOSKELETAL DISCOMFORT
     Dosage: 5/325 MG
     Route: 065

REACTIONS (6)
  - Flushing [Recovered/Resolved]
  - Nausea [Recovered/Resolved]
  - Hyperhidrosis [Recovered/Resolved]
  - Diarrhoea [Recovered/Resolved]
  - Lethargy [Recovered/Resolved]
  - Insomnia [Recovered/Resolved]
